FAERS Safety Report 4815897-0 (Version None)
Quarter: 2005Q4

REPORT INFORMATION
  Report Type: 
  Country: None (occurrence: None)
  Receive Date: 20051026
  Receipt Date: 20051013
  Transmission Date: 20060501
  Serious: Yes (Disabling, Other)
  Sender: FDA-Public Use
  Company Number: 2005142228

PATIENT
  Age: 45 Year
  Sex: Male
  Weight: 86.1834 kg

DRUGS (7)
  1. CELEBREX [Suspect]
     Indication: ARTHRITIS
     Dosage: 400 MG (200 MG 2 IN 1 D)
     Dates: start: 19980101
  2. PERCOCET [Concomitant]
  3. HYDROCODONE BITARTRATE [Concomitant]
  4. SOMA [Concomitant]
  5. DIAZEPAM [Concomitant]
  6. LOVASTATIN [Concomitant]
  7. PROTONIX [Concomitant]

REACTIONS (1)
  - ULNAR NERVE INJURY [None]
